FAERS Safety Report 12794663 (Version 3)
Quarter: 2019Q2

REPORT INFORMATION
  Report Type: Spontaneous
  Country: US (occurrence: US)
  Receive Date: 20160929
  Receipt Date: 20190614
  Transmission Date: 20190711
  Serious: No
  Sender: FDA-Public Use
  Company Number: US-JNJFOC-20160917944

PATIENT
  Age: 23 Year
  Sex: Male

DRUGS (24)
  1. RISPERDAL [Suspect]
     Active Substance: RISPERIDONE
     Indication: AFFECT LABILITY
     Route: 048
     Dates: start: 200905, end: 200905
  2. RISPERDAL [Suspect]
     Active Substance: RISPERIDONE
     Indication: AFFECT LABILITY
     Route: 048
     Dates: start: 201208, end: 201402
  3. RISPERDAL [Suspect]
     Active Substance: RISPERIDONE
     Indication: SCHIZOAFFECTIVE DISORDER
     Route: 048
     Dates: start: 201208, end: 201402
  4. RISPERDAL [Suspect]
     Active Substance: RISPERIDONE
     Indication: SCHIZOAFFECTIVE DISORDER
     Route: 048
     Dates: start: 200908, end: 201207
  5. RISPERDAL [Suspect]
     Active Substance: RISPERIDONE
     Indication: AFFECT LABILITY
     Route: 048
     Dates: start: 200909, end: 201207
  6. RISPERDAL [Suspect]
     Active Substance: RISPERIDONE
     Indication: PSYCHOTIC DISORDER
     Route: 048
     Dates: start: 201107, end: 201107
  7. RISPERDAL [Suspect]
     Active Substance: RISPERIDONE
     Indication: SCHIZOAFFECTIVE DISORDER
     Route: 048
     Dates: start: 200809
  8. RISPERDAL [Suspect]
     Active Substance: RISPERIDONE
     Indication: SCHIZOAFFECTIVE DISORDER
     Route: 048
     Dates: start: 200905, end: 200905
  9. RISPERDAL [Suspect]
     Active Substance: RISPERIDONE
     Indication: AFFECT LABILITY
     Route: 048
     Dates: start: 201208, end: 201402
  10. RISPERDAL [Suspect]
     Active Substance: RISPERIDONE
     Indication: PSYCHOTIC DISORDER
     Route: 048
     Dates: start: 201208, end: 201402
  11. RISPERDAL [Suspect]
     Active Substance: RISPERIDONE
     Indication: PSYCHOTIC DISORDER
     Route: 048
     Dates: start: 201208, end: 201402
  12. RISPERDAL [Suspect]
     Active Substance: RISPERIDONE
     Indication: SCHIZOAFFECTIVE DISORDER
     Route: 048
     Dates: start: 201208, end: 201402
  13. RISPERDAL [Suspect]
     Active Substance: RISPERIDONE
     Indication: AFFECT LABILITY
     Route: 048
     Dates: start: 200905, end: 200908
  14. RISPERDAL [Suspect]
     Active Substance: RISPERIDONE
     Indication: PSYCHOTIC DISORDER
     Route: 048
     Dates: start: 200909, end: 201207
  15. RISPERDAL [Suspect]
     Active Substance: RISPERIDONE
     Indication: PSYCHOTIC DISORDER
     Route: 048
     Dates: start: 200905, end: 200908
  16. RISPERDAL [Suspect]
     Active Substance: RISPERIDONE
     Indication: PSYCHOTIC DISORDER
     Route: 048
     Dates: start: 200905, end: 200905
  17. RISPERDAL [Suspect]
     Active Substance: RISPERIDONE
     Indication: PSYCHOTIC DISORDER
     Route: 048
     Dates: start: 200809
  18. RISPERDAL [Suspect]
     Active Substance: RISPERIDONE
     Indication: SCHIZOAFFECTIVE DISORDER
     Route: 048
     Dates: start: 201107, end: 201107
  19. RISPERDAL [Suspect]
     Active Substance: RISPERIDONE
     Indication: SCHIZOAFFECTIVE DISORDER
     Route: 048
     Dates: start: 200905, end: 200908
  20. RISPERDAL [Suspect]
     Active Substance: RISPERIDONE
     Indication: AFFECT LABILITY
     Route: 048
     Dates: start: 200809
  21. RISPERDAL [Suspect]
     Active Substance: RISPERIDONE
     Indication: AFFECT LABILITY
     Route: 048
     Dates: start: 201107, end: 201107
  22. RISPERDAL [Suspect]
     Active Substance: RISPERIDONE
     Indication: PSYCHOTIC DISORDER
     Route: 048
     Dates: start: 200908, end: 201207
  23. RISPERDAL [Suspect]
     Active Substance: RISPERIDONE
     Indication: SCHIZOAFFECTIVE DISORDER
     Route: 048
     Dates: start: 200909, end: 201207
  24. RISPERDAL [Suspect]
     Active Substance: RISPERIDONE
     Indication: AFFECT LABILITY
     Route: 048
     Dates: start: 200908, end: 201207

REACTIONS (4)
  - Abnormal weight gain [Unknown]
  - Gynaecomastia [Unknown]
  - Hyperprolactinaemia [Unknown]
  - Tremor [Unknown]

NARRATIVE: CASE EVENT DATE: 20120507
